FAERS Safety Report 6415834-1 (Version None)
Quarter: 2009Q4

REPORT INFORMATION
  Report Type: 
  Country: None (occurrence: None)
  Receive Date: 20091022
  Receipt Date: 20091006
  Transmission Date: 20100525
  Serious: Yes (Other)
  Sender: FDA-Public Use
  Company Number: B0598033A

PATIENT
  Age: 54 Year
  Sex: Male

DRUGS (12)
  1. ZIDOVUDINE [Suspect]
     Indication: HIV INFECTION
  2. LAMIVUDINE [Suspect]
     Indication: HIV INFECTION
  3. ABACAVIR SULFATE [Suspect]
     Indication: HIV INFECTION
  4. DIDANOSINE [Suspect]
     Indication: HIV INFECTION
  5. STAVUDINE [Suspect]
     Indication: HIV INFECTION
  6. TENOFOVIR DISOPROXIL FUMARATE [Suspect]
     Indication: HIV INFECTION
  7. SAQUINAVIR (FORMULATION UNKNOWN) (SAQUINAVIR) [Suspect]
     Indication: HIV INFECTION
  8. INDINIVIR SULFATE [Suspect]
     Indication: HIV INFECTION
  9. T-20 (FORMULATION UNKNOWN) (T-20) [Suspect]
     Indication: HIV INFECTION
  10. NEVIRAPINE [Suspect]
     Indication: HIV INFECTION
  11. LOPINAVIR AND RITONAVIR [Suspect]
     Indication: HIV INFECTION
  12. ATAZANAVIR SULFATE [Suspect]
     Indication: HIV INFECTION

REACTIONS (7)
  - DIPLOPIA [None]
  - DYSPHAGIA [None]
  - EYELID PTOSIS [None]
  - GAZE PALSY [None]
  - LIPODYSTROPHY ACQUIRED [None]
  - MITOCHONDRIAL DNA DELETION [None]
  - MITOCHONDRIAL TOXICITY [None]
